FAERS Safety Report 9110000 (Version 1)
Quarter: 2013Q1

REPORT INFORMATION
  Report Type: Spontaneous
  Country: BE (occurrence: BE)
  Receive Date: 20130222
  Receipt Date: 20130222
  Transmission Date: 20140127
  Serious: Yes (Other)
  Sender: FDA-Public Use
  Company Number: BE-COVIDIEN/TYCO HEALTHCARE/MALLINCKRODT-T201300884

PATIENT
  Sex: Female

DRUGS (1)
  1. SODIUM IODIDE (I 131) [Suspect]
     Dosage: 3700 MBQ, SINGLE

REACTIONS (1)
  - Hypothyroidism [Unknown]
